FAERS Safety Report 8437013-9 (Version None)
Quarter: 2012Q2

REPORT INFORMATION
  Report Type: 
  Country: None (occurrence: None)
  Receive Date: 20120614
  Receipt Date: 20120426
  Transmission Date: 20120825
  Serious: No
  Sender: FDA-Public Use
  Company Number: US-AMGEN-USASP2012026730

PATIENT
  Sex: Female

DRUGS (4)
  1. NEULASTA [Suspect]
     Indication: ANAEMIA
     Dosage: UNK
  2. VITAMIN D [Concomitant]
  3. CALCIUM [Concomitant]
  4. ARANESP [Suspect]
     Indication: ANAEMIA

REACTIONS (1)
  - BONE PAIN [None]
